FAERS Safety Report 21968460 (Version 1)
Quarter: 2023Q1

REPORT INFORMATION
  Report Type: Spontaneous
  Country: JP (occurrence: JP)
  Receive Date: 20230208
  Receipt Date: 20230208
  Transmission Date: 20230418
  Serious: Yes (Other)
  Sender: FDA-Public Use
  Company Number: JP-TAKEDA-2023TUS013750

PATIENT
  Sex: Male

DRUGS (2)
  1. INTUNIV [Suspect]
     Active Substance: GUANFACINE HYDROCHLORIDE
     Indication: Neurodevelopmental disorder
     Dosage: UNK
     Route: 048
     Dates: start: 202211, end: 202212
  2. STRATTERA [Concomitant]
     Active Substance: ATOMOXETINE HYDROCHLORIDE
     Indication: Neurodevelopmental disorder
     Dosage: UNK
     Route: 065

REACTIONS (3)
  - Akinesia [Unknown]
  - Malaise [Unknown]
  - Somnolence [Unknown]
